FAERS Safety Report 4350622-1 (Version None)
Quarter: 2004Q2

REPORT INFORMATION
  Report Type: 
  Country: None (occurrence: None)
  Receive Date: 20040427
  Receipt Date: 20040419
  Transmission Date: 20050107
  Serious: Yes (Hospitalization)
  Sender: FDA-Public Use
  Company Number: STA-AE-04-MTX-143

PATIENT
  Age: 75 Year
  Sex: Female

DRUGS (13)
  1. RHEUMATREX [Suspect]
     Indication: RHEUMATOID ARTHRITIS
     Dosage: 6 MG 1X PER 1 WK, ORAL
     Route: 048
     Dates: start: 20020101, end: 20040227
  2. METHOTREXATE [Suspect]
     Indication: RHEUMATOID ARTHRITIS
     Dosage: ORAL
     Route: 048
  3. OPALMON (LIMAPROST) [Concomitant]
  4. JUVELA (TOCOPHEROL) [Concomitant]
  5. BERAPROST (BERAPROST) [Concomitant]
  6. WARFARIN SODIUM [Concomitant]
  7. UNIPHYL [Concomitant]
  8. FAMOTIDINE [Concomitant]
  9. PREDNISOLONE [Concomitant]
  10. ONE-ALPHA (ALFACALCIDOL) [Concomitant]
  11. MUCODYNE (CARBOCISTEINE) [Concomitant]
  12. CALCIUM (CALCIUM) [Concomitant]
  13. HOKUNALIN (TULOBUTEROL HYDROCHLORIDE) [Concomitant]

REACTIONS (8)
  - ANOREXIA [None]
  - DISSEMINATED INTRAVASCULAR COAGULATION [None]
  - HEPAPLASTIN DECREASED [None]
  - HEPATIC FAILURE [None]
  - PLATELET COUNT DECREASED [None]
  - SEPSIS [None]
  - SKIN NECROSIS [None]
  - WHITE BLOOD CELL COUNT DECREASED [None]
